FAERS Safety Report 15553789 (Version 1)
Quarter: 2018Q4

REPORT INFORMATION
  Report Type: Spontaneous
  Country: US (occurrence: US)
  Receive Date: 20181026
  Receipt Date: 20181026
  Transmission Date: 20190205
  Serious: No
  Sender: FDA-Public Use
  Company Number: US-SA-2018SA294448

PATIENT
  Sex: Male

DRUGS (1)
  1. COLESEVELAM HYDROCHLORIDE. [Suspect]
     Active Substance: COLESEVELAM HYDROCHLORIDE
     Indication: HYPERGLYCAEMIA
     Dosage: 625 MG

REACTIONS (1)
  - Myalgia [Recovered/Resolved]
